FAERS Safety Report 4371366-6 (Version None)
Quarter: 2004Q2

REPORT INFORMATION
  Report Type: 
  Country: None (occurrence: None)
  Receive Date: 20040604
  Receipt Date: 20040521
  Transmission Date: 20050107
  Serious: Yes (Death)
  Sender: FDA-Public Use
  Company Number: 2004S1001503

PATIENT
  Age: 91 Year
  Sex: Male

DRUGS (10)
  1. CLOZAPINE [Suspect]
     Indication: DELIRIUM
     Dosage: 12.5 MG Q AM + 25 MG Q HS, ORAL
     Route: 048
  2. CLOZAPINE [Suspect]
     Indication: DEPRESSION
     Dosage: 12.5 MG Q AM + 25 MG Q HS, ORAL
     Route: 048
  3. BUPROPION HCL [Concomitant]
  4. VENLAFAXINE [Concomitant]
  5. CARBIDOPA AND LEVODOPA [Concomitant]
  6. ATORVASTATIN CALCIUM [Concomitant]
  7. CLOPIDOGREL BISULFATE [Concomitant]
  8. ENTACAPONE [Concomitant]
  9. ROPINIROLE [Concomitant]
  10. ISORBIDE [Concomitant]

REACTIONS (3)
  - CARDIAC ARREST [None]
  - DELIRIUM [None]
  - SUPRANUCLEAR PALSY [None]
